FAERS Safety Report 13024970 (Version 1)
Quarter: 2016Q4

REPORT INFORMATION
  Report Type: Spontaneous
  Country: US (occurrence: US)
  Receive Date: 20161213
  Receipt Date: 20161213
  Transmission Date: 20170207
  Serious: No
  Sender: FDA-Public Use
  Company Number: US-TAIHO ONCOLOGY INC-EU-2016-03158

PATIENT
  Sex: Female

DRUGS (8)
  1. LONSURF [Suspect]
     Active Substance: TIPIRACIL HYDROCHLORIDE\TRIFLURIDINE
     Indication: COLON CANCER
     Route: 048
     Dates: start: 201611
  2. PARACETAMOL/OXYCODONE HYDROCHLORIDE [Concomitant]
  3. PROCHLORPERAZINE. [Concomitant]
     Active Substance: PROCHLORPERAZINE
  4. LISINOPRIL. [Concomitant]
     Active Substance: LISINOPRIL
  5. PREDNISONE. [Concomitant]
     Active Substance: PREDNISONE
     Dosage: NI
  6. ONDANSETRON [Concomitant]
     Active Substance: ONDANSETRON
     Dosage: NI
  7. GABAPENTIN. [Concomitant]
     Active Substance: GABAPENTIN
  8. CREON [Concomitant]
     Active Substance: PANCRELIPASE AMYLASE\PANCRELIPASE LIPASE\PANCRELIPASE PROTEASE

REACTIONS (3)
  - Nausea [Not Recovered/Not Resolved]
  - Pyrexia [Not Recovered/Not Resolved]
  - Abdominal pain [Not Recovered/Not Resolved]

NARRATIVE: CASE EVENT DATE: 2016
